FAERS Safety Report 16545740 (Version 1)
Quarter: 2019Q3

REPORT INFORMATION
  Report Type: Spontaneous
  Country: SE (occurrence: SE)
  Receive Date: 20190709
  Receipt Date: 20190709
  Transmission Date: 20191004
  Serious: Yes (Other)
  Sender: FDA-Public Use
  Company Number: SE-TEVA-2019-SE-1074221

PATIENT
  Age: 77 Year
  Sex: Male

DRUGS (1)
  1. TERBINAFINE. [Suspect]
     Active Substance: TERBINAFINE
     Indication: ONYCHOMYCOSIS
     Dosage: 750MG
     Route: 048
     Dates: start: 20190508, end: 20190601

REACTIONS (1)
  - Erythema multiforme [Not Recovered/Not Resolved]

NARRATIVE: CASE EVENT DATE: 20190601
